FAERS Safety Report 5481178-8 (Version None)
Quarter: 2007Q4

REPORT INFORMATION
  Report Type: 
  Country: None (occurrence: None)
  Receive Date: 20071010
  Receipt Date: 20071003
  Transmission Date: 20080405
  Serious: Yes (Other)
  Sender: FDA-Public Use
  Company Number: PHBS2007JP14915

PATIENT
  Age: 77 Year
  Sex: Male

DRUGS (2)
  1. DIOVAN [Suspect]
     Dosage: UNK, UNK
     Route: 048
  2. PURSENNID (NCH) [Suspect]
     Dosage: UNK, UNK
     Route: 065

REACTIONS (1)
  - ERYTHEMA ANNULARE [None]
